FAERS Safety Report 7516104-0 (Version None)
Quarter: 2011Q2

REPORT INFORMATION
  Report Type: 
  Country: None (occurrence: None)
  Receive Date: 20110520
  Receipt Date: 20110510
  Transmission Date: 20111010
  Serious: Yes (Hospitalization)
  Sender: FDA-Public Use
  Company Number: UTC-007016

PATIENT
  Age: 26 Year

DRUGS (2)
  1. DIURETICS (DIURETICS) [Concomitant]
  2. TYVASO [Suspect]
     Dosage: (18 MCG), INHALATION
     Route: 055
     Dates: start: 20110507

REACTIONS (3)
  - HEADACHE [None]
  - LIP SWELLING [None]
  - HYPOTENSION [None]
